FAERS Safety Report 4392813-X (Version None)
Quarter: 2004Q3

REPORT INFORMATION
  Report Type: 
  Country: None (occurrence: None)
  Receive Date: 20040702
  Receipt Date: 20040317
  Transmission Date: 20050211
  Serious: Yes (Other)
  Sender: FDA-Public Use
  Company Number: 2004UW05121

PATIENT
  Age: 59 Year
  Sex: Female
  Weight: 78.0187 kg

DRUGS (4)
  1. CRESTOR [Suspect]
     Indication: HYPERCHOLESTEROLAEMIA
     Dosage: 10 MG QD PO
     Route: 048
     Dates: start: 20040201
  2. ATENOLOL [Concomitant]
  3. ALTACE [Concomitant]
  4. DETROL [Concomitant]

REACTIONS (2)
  - MUSCLE STRAIN [None]
  - NECK PAIN [None]
